FAERS Safety Report 25277688 (Version 1)
Quarter: 2025Q2

REPORT INFORMATION
  Report Type: Spontaneous
  Country: US (occurrence: US)
  Receive Date: 20250507
  Receipt Date: 20250507
  Transmission Date: 20250716
  Serious: Yes (Hospitalization)
  Sender: PFIZER
  Company Number: US-PFIZER INC-202500094407

PATIENT
  Age: 63 Year
  Sex: Female

DRUGS (3)
  1. PALBOCICLIB [Suspect]
     Active Substance: PALBOCICLIB
  2. INAVOLISIB [Suspect]
     Active Substance: INAVOLISIB
  3. FASLODEX [Suspect]
     Active Substance: FULVESTRANT

REACTIONS (1)
  - Diarrhoea [Recovered/Resolved]
